FAERS Safety Report 10543738 (Version 1)
Quarter: 2014Q4

REPORT INFORMATION
  Report Type: Spontaneous
  Country: US (occurrence: None)
  Receive Date: 20141024
  Receipt Date: 20141024
  Transmission Date: 20150529
  Serious: Yes (Hospitalization)
  Sender: FDA-Public Use
  Company Number: None

PATIENT
  Age: 63 Year
  Sex: Female
  Weight: 49.4 kg

DRUGS (1)
  1. BEVACIZUMAB [Suspect]
     Active Substance: BEVACIZUMAB
     Indication: OVARIAN CANCER STAGE III
     Route: 042

REACTIONS (5)
  - Vomiting [None]
  - Presyncope [None]
  - Nausea [None]
  - Intracranial aneurysm [None]
  - Subarachnoid haemorrhage [None]

NARRATIVE: CASE EVENT DATE: 20141008
